FAERS Safety Report 10859538 (Version 1)
Quarter: 2015Q1

REPORT INFORMATION
  Report Type: Spontaneous
  Country: US (occurrence: US)
  Receive Date: 20150223
  Receipt Date: 20150223
  Transmission Date: 20150721
  Serious: No
  Sender: FDA-Public Use
  Company Number: US-CELGENEUS-163-21880-14074311

PATIENT
  Age: 61 Year
  Sex: Female
  Weight: 82.6 kg

DRUGS (1)
  1. REVLIMID [Suspect]
     Active Substance: LENALIDOMIDE
     Indication: PLASMA CELL MYELOMA
     Dosage: 10 MILLIGRAM
     Route: 048
     Dates: start: 201405

REACTIONS (3)
  - Drug dose omission [Unknown]
  - Muscle spasms [Unknown]
  - Influenza [Unknown]

NARRATIVE: CASE EVENT DATE: 20140724
